FAERS Safety Report 19614886 (Version 3)
Quarter: 2021Q3

REPORT INFORMATION
  Report Type: Report from Study
  Country: US (occurrence: US)
  Receive Date: 20210727
  Receipt Date: 20210927
  Transmission Date: 20211014
  Serious: Yes (Other)
  Sender: FDA-Public Use
  Company Number: US-ORGANON-O2107USA002101

PATIENT
  Age: 30 Year
  Sex: Female
  Weight: 104.31 kg

DRUGS (7)
  1. QUETIAPINE. [Concomitant]
     Active Substance: QUETIAPINE
  2. IMPLANON [Suspect]
     Active Substance: ETONOGESTREL
     Dosage: 1 IMPLANT
     Route: 059
     Dates: start: 20080621
  3. NEXPLANON [Suspect]
     Active Substance: ETONOGESTREL
     Indication: ENDOMETRIOSIS
     Dosage: IMPLANT (1 DOSAGE FORM), 6 YEARS AGO
     Route: 059
     Dates: start: 2015, end: 201807
  4. NEXPLANON [Suspect]
     Active Substance: ETONOGESTREL
     Indication: POLYCYSTIC OVARIES
     Dosage: 1 IMPLANT (LEFT, NON?DOMINANT ARM)
     Route: 059
     Dates: start: 201807, end: 20210809
  5. AZELASTINE. [Concomitant]
     Active Substance: AZELASTINE HYDROCHLORIDE
  6. VIIBRYD [Concomitant]
     Active Substance: VILAZODONE HYDROCHLORIDE
  7. NEXPLANON [Suspect]
     Active Substance: ETONOGESTREL
     Indication: ENDOMETRIOSIS
     Dosage: 1 IMPLANT (LEFT, NON?DOMINANT ARM)
     Route: 059
     Dates: start: 20210809, end: 20210910

REACTIONS (10)
  - Incorrect product administration duration [Unknown]
  - Implant site infection [Recovering/Resolving]
  - Implant site pain [Recovering/Resolving]
  - Therapeutic response unexpected [Unknown]
  - Polycystic ovaries [Unknown]
  - Papilloma viral infection [Unknown]
  - Endometriosis [Unknown]
  - Product use in unapproved indication [Unknown]
  - Device dislocation [Recovered/Resolved]
  - Pyrexia [Recovering/Resolving]

NARRATIVE: CASE EVENT DATE: 2015
